FAERS Safety Report 5107906-9 (Version None)
Quarter: 2006Q3

REPORT INFORMATION
  Report Type: 
  Country: None (occurrence: None)
  Receive Date: 20060919
  Receipt Date: 20060828
  Transmission Date: 20061208
  Serious: Yes (Death, Life-Threatening)
  Sender: FDA-Public Use
  Company Number: 2006AP04031

PATIENT
  Age: 28416 Day
  Sex: Female
  Weight: 33 kg

DRUGS (10)
  1. IRESSA [Suspect]
     Indication: LUNG ADENOCARCINOMA
     Route: 048
     Dates: start: 20060822, end: 20060826
  2. ADALAT [Concomitant]
     Indication: HYPERTENSION
     Route: 048
     Dates: start: 20060804
  3. JUVELA NICOTINATE [Concomitant]
     Indication: ARTERIOSCLEROSIS OBLITERANS
     Route: 048
     Dates: start: 20060801
  4. ISOSORBIDE MONONITRATE [Concomitant]
     Indication: ANGINA PECTORIS
     Route: 048
     Dates: start: 20060811
  5. FLOMOX [Concomitant]
     Route: 048
     Dates: start: 20060801, end: 20060803
  6. MUCOSOLVAN [Concomitant]
     Route: 048
     Dates: start: 20060801, end: 20060803
  7. DIOVAN [Concomitant]
     Indication: HYPERTENSION
     Route: 048
     Dates: start: 20060801, end: 20060803
  8. FRANDOL [Concomitant]
     Indication: ANGINA PECTORIS
     Route: 048
     Dates: start: 20060804
  9. HUSCODE [Concomitant]
     Indication: LUNG ADENOCARCINOMA
     Route: 048
     Dates: start: 20060804
  10. MICARDIS [Concomitant]
     Indication: HYPERTENSION
     Route: 048
     Dates: start: 20060811

REACTIONS (2)
  - LUNG DISORDER [None]
  - MYOCARDIAL INFARCTION [None]
